FAERS Safety Report 7718338-9 (Version None)
Quarter: 2011Q3

REPORT INFORMATION
  Report Type: 
  Country: None (occurrence: None)
  Receive Date: 20110830
  Receipt Date: 20110823
  Transmission Date: 20111222
  Serious: Yes (Other)
  Sender: FDA-Public Use
  Company Number: PHEH2011US02302

PATIENT
  Sex: Female

DRUGS (1)
  1. ESTRADERM [Suspect]
     Dosage: 0.05 MG, QW2
     Route: 062
     Dates: start: 19850101

REACTIONS (9)
  - PAIN IN EXTREMITY [None]
  - VEIN DISORDER [None]
  - PANCREATITIS [None]
  - ALPHA-1 ANTI-TRYPSIN ABNORMAL [None]
  - LIVER DISORDER [None]
  - SINUSITIS [None]
  - HEPATIC ENZYME INCREASED [None]
  - VISUAL IMPAIRMENT [None]
  - INFECTION [None]
